FAERS Safety Report 8515193-4 (Version None)
Quarter: 2012Q3

REPORT INFORMATION
  Report Type: 
  Country: None (occurrence: None)
  Receive Date: 20120717
  Receipt Date: 20120711
  Transmission Date: 20120928
  Serious: Yes (Death, Hospitalization)
  Sender: FDA-Public Use
  Company Number: JP-GLAXOSMITHKLINE-B0812008A

PATIENT
  Age: 42 Year
  Sex: Female
  Weight: 42 kg

DRUGS (15)
  1. FLOLAN [Concomitant]
     Route: 042
     Dates: start: 20100101, end: 20110101
  2. FLOLAN [Concomitant]
     Indication: PULMONARY ARTERIAL HYPERTENSION
     Route: 042
     Dates: start: 20070405, end: 20090101
  3. BERAPROST SODIUM [Concomitant]
     Indication: PULMONARY ARTERIAL HYPERTENSION
     Route: 048
     Dates: start: 20051214, end: 20070405
  4. JANUVIA [Concomitant]
     Indication: DIABETES MELLITUS
     Route: 048
     Dates: start: 20110308, end: 20111125
  5. EPLERENONE [Concomitant]
     Indication: CARDIAC FAILURE
     Route: 048
     Dates: start: 20110322, end: 20111125
  6. SLOW-K [Concomitant]
     Indication: HYPOKALAEMIA
     Route: 048
     Dates: start: 20110401, end: 20111125
  7. VOLIBRIS [Suspect]
     Dosage: 5MG PER DAY
     Route: 048
     Dates: start: 20110607, end: 20110613
  8. ADCIRCA [Suspect]
     Indication: PULMONARY ARTERIAL HYPERTENSION
     Route: 048
     Dates: start: 20110307, end: 20120109
  9. FLOLAN [Concomitant]
     Route: 042
     Dates: start: 20090101, end: 20100101
  10. FLOLAN [Concomitant]
     Route: 042
     Dates: start: 20110101, end: 20120109
  11. TRACLEER [Concomitant]
     Indication: PULMONARY ARTERIAL HYPERTENSION
     Route: 048
     Dates: start: 20060131, end: 20070405
  12. VOLIBRIS [Suspect]
     Indication: PULMONARY ARTERIAL HYPERTENSION
     Dosage: 2.5MG PER DAY
     Route: 048
     Dates: start: 20110604, end: 20110606
  13. TOLVAPTAN [Concomitant]
     Indication: RIGHT VENTRICULAR FAILURE
     Route: 048
     Dates: start: 20110316, end: 20110324
  14. UNKNOWN DRUG [Concomitant]
     Indication: PULMONARY HYPERTENSION
     Route: 065
  15. VOLIBRIS [Suspect]
     Dosage: 10MG PER DAY
     Route: 048
     Dates: start: 20110614, end: 20120109

REACTIONS (2)
  - ASCITES [None]
  - RIGHT VENTRICULAR FAILURE [None]
